FAERS Safety Report 9621710 (Version 1)
Quarter: 2013Q4

REPORT INFORMATION
  Report Type: Spontaneous
  Country: NL (occurrence: NL)
  Receive Date: 20131015
  Receipt Date: 20131015
  Transmission Date: 20140711
  Serious: Yes (Other)
  Sender: FDA-Public Use
  Company Number: NL-TEVA-436597ISR

PATIENT
  Age: 29 Year
  Sex: Female
  Weight: 85 kg

DRUGS (3)
  1. METHOTREXATE [Suspect]
     Indication: RHEUMATOID ARTHRITIS
     Dosage: ONCE WEEKLY 1 TABLET
     Route: 048
     Dates: start: 20130116
  2. HUMIRA [Interacting]
     Indication: RHEUMATOID ARTHRITIS
     Dosage: ONCE EVERY 2 WEEKS
     Route: 058
     Dates: start: 20130204
  3. ALVESCO [Concomitant]
     Dosage: 2 DOSAGE FORMS DAILY; TWICE DAILY ONE
     Route: 055
     Dates: start: 2008

REACTIONS (2)
  - Mental disorder [Not Recovered/Not Resolved]
  - Drug interaction [Not Recovered/Not Resolved]
